FAERS Safety Report 6146154-0 (Version None)
Quarter: 2009Q2

REPORT INFORMATION
  Report Type: 
  Country: None (occurrence: None)
  Receive Date: 20090403
  Receipt Date: 20090323
  Transmission Date: 20091009
  Serious: Yes (Hospitalization)
  Sender: FDA-Public Use
  Company Number: TAP2009Q00291

PATIENT
  Sex: Female

DRUGS (2)
  1. PREVACID [Suspect]
     Indication: GASTROINTESTINAL DISORDER
  2. SYNTHROID [Concomitant]

REACTIONS (1)
  - INTESTINAL PERFORATION [None]
